FAERS Safety Report 7677350-9 (Version None)
Quarter: 2011Q3

REPORT INFORMATION
  Report Type: 
  Country: None (occurrence: None)
  Receive Date: 20110811
  Receipt Date: 20110729
  Transmission Date: 20111222
  Serious: Yes (Hospitalization)
  Sender: FDA-Public Use
  Company Number: CA-ELI_LILLY_AND_COMPANY-CA201107008006

PATIENT
  Sex: Male

DRUGS (14)
  1. LEXIN [Concomitant]
  2. FLUANXOL [Concomitant]
  3. BISOPROLOL FUMARATE [Concomitant]
  4. ZYPREXA ZYDIS [Suspect]
     Indication: SCHIZOPHRENIA
     Dosage: 10 MG, UNKNOWN
  5. ATIVAN [Concomitant]
  6. LIPITOR [Concomitant]
  7. ZYPREXA ZYDIS [Suspect]
     Dosage: 20 MG, QD
  8. ZYPREXA [Suspect]
     Indication: SCHIZOPHRENIA
     Dosage: 10 MG, UNKNOWN
  9. SEROQUEL [Concomitant]
  10. VERAPAMIL [Concomitant]
  11. ALTACE [Concomitant]
     Indication: BLOOD PRESSURE
  12. CLONAZEPAM [Concomitant]
  13. PHENAZO [Concomitant]
  14. CITALOPRAM [Concomitant]

REACTIONS (6)
  - BLOOD PRESSURE ABNORMAL [None]
  - HYPERGLYCAEMIA [None]
  - DIABETES MELLITUS [None]
  - NEUTROPHIL COUNT INCREASED [None]
  - LYMPHOCYTE COUNT INCREASED [None]
  - WHITE BLOOD CELL COUNT INCREASED [None]
